FAERS Safety Report 18904505 (Version 1)
Quarter: 2021Q1

REPORT INFORMATION
  Report Type: Spontaneous
  Country: FR (occurrence: FR)
  Receive Date: 20210217
  Receipt Date: 20210217
  Transmission Date: 20210420
  Serious: Yes (Other)
  Sender: FDA-Public Use
  Company Number: FR-ASTRAZENECA-2021A049281

PATIENT
  Age: 70 Year
  Sex: Male
  Weight: 62 kg

DRUGS (2)
  1. QUETIAPINE. [Suspect]
     Active Substance: QUETIAPINE
     Indication: BEHAVIOUR DISORDER
     Route: 048
     Dates: start: 20201231, end: 20210107
  2. LOXAPAC [Interacting]
     Active Substance: LOXAPINE
     Indication: BEHAVIOUR DISORDER
     Route: 048
     Dates: end: 20210105

REACTIONS (5)
  - Mydriasis [Recovered/Resolved]
  - Rhabdomyolysis [Recovered/Resolved]
  - Musculoskeletal stiffness [Recovered/Resolved]
  - Extrapyramidal disorder [Recovered/Resolved]
  - Confusional state [Recovered/Resolved]

NARRATIVE: CASE EVENT DATE: 20210107
